FAERS Safety Report 13662164 (Version 1)
Quarter: 2017Q2

REPORT INFORMATION
  Report Type: Report from Study
  Country: US (occurrence: US)
  Receive Date: 20170616
  Receipt Date: 20170616
  Transmission Date: 20170830
  Serious: No
  Sender: FDA-Public Use
  Company Number: PHEH2017US018202

PATIENT
  Sex: Female

DRUGS (1)
  1. ENTRESTO [Suspect]
     Active Substance: SACUBITRIL\VALSARTAN
     Indication: PRODUCT USED FOR UNKNOWN INDICATION
     Dosage: HALF(SACUBITRIL 24 MG/ VALSARTAN 26 MG), BID (ONE IN THE MORNING AND ONE IN THE EVENING)
     Route: 065

REACTIONS (3)
  - Underdose [Unknown]
  - Drug prescribing error [Unknown]
  - Wrong technique in product usage process [Unknown]
